FAERS Safety Report 13317506 (Version 1)
Quarter: 2017Q1

REPORT INFORMATION
  Report Type: Spontaneous
  Country: US (occurrence: US)
  Receive Date: 20170308
  Receipt Date: 20170308
  Transmission Date: 20170428
  Serious: No
  Sender: FDA-Public Use
  Company Number: US-AMGEN-USASP2016067143

PATIENT
  Age: 69 Year
  Sex: Female

DRUGS (2)
  1. SENSIPAR [Suspect]
     Active Substance: CINACALCET HYDROCHLORIDE
     Indication: HYPERPARATHYROIDISM SECONDARY
     Dosage: 40 MG, QD
     Route: 048
     Dates: start: 20160120
  2. SENSIPAR [Suspect]
     Active Substance: CINACALCET HYDROCHLORIDE

REACTIONS (3)
  - Living in residential institution [Unknown]
  - Wrong technique in product usage process [Unknown]
  - Drug ineffective [Unknown]
